FAERS Safety Report 7060096-8 (Version None)
Quarter: 2010Q4

REPORT INFORMATION
  Report Type: 
  Country: None (occurrence: None)
  Receive Date: 20101025
  Receipt Date: 20101018
  Transmission Date: 20110411
  Serious: Yes (Other)
  Sender: FDA-Public Use
  Company Number: US-JNJFOC-20100301946

PATIENT
  Sex: Male

DRUGS (2)
  1. NUCYNTA [Suspect]
     Indication: PAIN
     Route: 048
  2. CYMBALTA [Concomitant]
     Route: 065

REACTIONS (3)
  - MANIA [None]
  - OVERDOSE [None]
  - SUICIDAL IDEATION [None]
